FAERS Safety Report 6958040-4 (Version None)
Quarter: 2010Q3

REPORT INFORMATION
  Report Type: 
  Country: None (occurrence: None)
  Receive Date: 20100831
  Receipt Date: 20100824
  Transmission Date: 20110219
  Serious: Yes (Hospitalization, Other)
  Sender: FDA-Public Use
  Company Number: FR-BRISTOL-MYERS SQUIBB COMPANY-15256290

PATIENT
  Age: 74 Year
  Sex: Female

DRUGS (6)
  1. COAPROVEL TABS 150MG/12.5MG [Suspect]
     Indication: HYPERTENSION
     Dosage: 1 DF=150/12.5 MG
     Route: 048
     Dates: end: 20100521
  2. PHOSPHO-SODA [Suspect]
  3. DIAMICRON [Concomitant]
     Indication: TYPE 2 DIABETES MELLITUS
     Dosage: FORMULATION:(30 MG) 2 TABLETS DAILY
     Route: 048
     Dates: start: 20100521
  4. SIMVASTATIN [Concomitant]
     Indication: DYSLIPIDAEMIA
     Route: 048
  5. MONURIL [Concomitant]
     Indication: PYELONEPHRITIS
     Route: 048
  6. SECTRAL [Concomitant]
     Dosage: FORMULATION:1 TABLET 400 MG
     Route: 048
     Dates: end: 20090818

REACTIONS (6)
  - DIARRHOEA [None]
  - HYPERPARATHYROIDISM [None]
  - HYPOGLYCAEMIA [None]
  - METABOLIC ACIDOSIS [None]
  - RENAL FAILURE ACUTE [None]
  - RENAL TUBULAR DISORDER [None]
